FAERS Safety Report 18127653 (Version 2)
Quarter: 2020Q3

REPORT INFORMATION
  Report Type: Spontaneous
  Country: US (occurrence: US)
  Receive Date: 20200810
  Receipt Date: 20200814
  Transmission Date: 20201103
  Serious: No
  Sender: FDA-Public Use
  Company Number: US-GLENMARK PHARMACEUTICALS-2020GMK048443

PATIENT

DRUGS (2)
  1. FLUOCINOLONE ACETONIDE 0.01% TOPICAL OIL (SCALP OIL) [Suspect]
     Active Substance: FLUOCINOLONE ACETONIDE
     Dosage: ONCE A WEEK OR ONCE EVERY 2 WEEKS / EVERY COUPLE OF WEEKS (RECENT COMPLAINT BATCH)
     Route: 061
  2. FLUOCINOLONE ACETONIDE 0.01% TOPICAL OIL (SCALP OIL) [Suspect]
     Active Substance: FLUOCINOLONE ACETONIDE
     Indication: PSORIASIS
     Dosage: ONCE A WEEK OR ONCE EVERY 2 WEEKS / EVERY COUPLE OF WEEKS
     Route: 061

REACTIONS (6)
  - Product complaint [Unknown]
  - Feeling abnormal [Recovered/Resolved]
  - Pain of skin [Recovered/Resolved]
  - Product quality issue [Unknown]
  - Product use issue [Unknown]
  - Skin discomfort [Recovered/Resolved]
